FAERS Safety Report 23818260 (Version 1)
Quarter: 2024Q2

REPORT INFORMATION
  Report Type: Spontaneous
  Country: US (occurrence: US)
  Receive Date: 20240506
  Receipt Date: 20240506
  Transmission Date: 20240716
  Serious: No
  Sender: FDA-Public Use
  Company Number: US-SANOFI-02023997

PATIENT
  Sex: Female

DRUGS (1)
  1. LUMIZYME [Suspect]
     Active Substance: ALGLUCOSIDASE ALFA
     Indication: Glycogen storage disease type II
     Dosage: UNK
     Route: 042
     Dates: start: 2021

REACTIONS (4)
  - Anxiety [Unknown]
  - Gait disturbance [Unknown]
  - Dyskinesia [Unknown]
  - Pain [Unknown]

NARRATIVE: CASE EVENT DATE: 20240420
